FAERS Safety Report 4990048-0 (Version None)
Quarter: 2006Q2

REPORT INFORMATION
  Report Type: 
  Country: None (occurrence: None)
  Receive Date: 20060427
  Receipt Date: 20060412
  Transmission Date: 20061013
  Serious: Yes (Hospitalization)
  Sender: FDA-Public Use
  Company Number: CIP06000864

PATIENT
  Age: 79 Year
  Sex: Male

DRUGS (3)
  1. DANTRIUM [Suspect]
     Indication: NEUROLEPTIC MALIGNANT SYNDROME
     Dosage: 40 MG FOUR TIMES DAILY, IV NOS
     Route: 042
     Dates: start: 20060303, end: 20060307
  2. PARLODEL (BROMOCRIPTIN MESILATE) [Suspect]
     Indication: NEUROLEPTIC MALIGNANT SYNDROME
     Dosage: 2.5 MG, 3/DAY, ORAL
     Route: 048
     Dates: start: 20060303, end: 20060307
  3. CARBENIN (PANIPENEM, BETAMIPRON) [Concomitant]

REACTIONS (3)
  - CHOLESTASIS [None]
  - JAUNDICE [None]
  - LIVER DISORDER [None]
